FAERS Safety Report 5906631-1 (Version None)
Quarter: 2008Q4

REPORT INFORMATION
  Report Type: 
  Country: None (occurrence: None)
  Receive Date: 20081002
  Receipt Date: 20080918
  Transmission Date: 20090506
  Serious: Yes (Life-Threatening, Hospitalization, Other)
  Sender: FDA-Public Use
  Company Number: US-ELI_LILLY_AND_COMPANY-US200809004495

PATIENT
  Sex: Female

DRUGS (2)
  1. FORTEO [Suspect]
     Dates: start: 20071201, end: 20080801
  2. FOSAMAX [Concomitant]
     Dates: start: 20080828

REACTIONS (5)
  - ARRHYTHMIA [None]
  - ASPHYXIA [None]
  - CARDIAC FAILURE [None]
  - MALAISE [None]
  - SNEEZING [None]
